FAERS Safety Report 22756270 (Version 4)
Quarter: 2024Q1

REPORT INFORMATION
  Report Type: Spontaneous
  Country: US (occurrence: US)
  Receive Date: 20230727
  Receipt Date: 20240101
  Transmission Date: 20240409
  Serious: No
  Sender: FDA-Public Use
  Company Number: US-SA-SAC20230726000494

PATIENT
  Age: 22 Year
  Sex: Female
  Weight: 54.422 kg

DRUGS (4)
  1. DUPIXENT [Suspect]
     Active Substance: DUPILUMAB
     Indication: Eosinophilic oesophagitis
     Dosage: 300 MG, QOW
     Route: 058
  2. METFORMIN HYDROCHLORIDE [Concomitant]
     Active Substance: METFORMIN HYDROCHLORIDE
     Dosage: UNK
  3. SPIRONOLACTONE [Concomitant]
     Active Substance: SPIRONOLACTONE
     Dosage: UNK
  4. CREATINE [Concomitant]
     Active Substance: CREATINE
     Dosage: UNK

REACTIONS (4)
  - Tonsillectomy [Unknown]
  - Injection site pain [Unknown]
  - Product administered at inappropriate site [Unknown]
  - Off label use [Unknown]

NARRATIVE: CASE EVENT DATE: 20231001
